FAERS Safety Report 4579294-8 (Version None)
Quarter: 2005Q1

REPORT INFORMATION
  Report Type: 
  Country: None (occurrence: None)
  Receive Date: 20050209
  Receipt Date: 20050128
  Transmission Date: 20050727
  Serious: Yes (Other)
  Sender: FDA-Public Use
  Company Number: 2005022704

PATIENT
  Sex: Female
  Weight: 97.5234 kg

DRUGS (9)
  1. DETROL LA [Suspect]
     Indication: HYPERTONIC BLADDER
     Dosage: 2 MG (2 MG, DAILY), ORAL
     Route: 048
  2. ATORVASTATIN (ATORVASTATIN) [Concomitant]
  3. AMLODIPINE BESYLATE [Concomitant]
  4. NAPROXEN [Concomitant]
  5. ESTRADIOL [Concomitant]
  6. ACETYLSALICYLIC ACID SRT [Concomitant]
  7. CALCITONIN, SALMON (CALCITONIN, SALMON) [Concomitant]
  8. CALCIUM (CALCIUM) [Concomitant]
  9. ZALEPLON (ZALEPLON) [Concomitant]

REACTIONS (4)
  - DIABETES MELLITUS [None]
  - DRY MOUTH [None]
  - SKIN ULCER [None]
  - TOE AMPUTATION [None]
